FAERS Safety Report 16859224 (Version 1)
Quarter: 2019Q3

REPORT INFORMATION
  Report Type: Report from Study
  Country: None (occurrence: GB)
  Receive Date: 20190926
  Receipt Date: 20190926
  Transmission Date: 20191005
  Serious: Yes (Other)
  Sender: FDA-Public Use
  Company Number: GB-ABBVIE-19K-167-2941421-00

PATIENT
  Sex: Male

DRUGS (2)
  1. DUODOPA [Suspect]
     Active Substance: CARBIDOPA\LEVODOPA
     Dosage: EXTRA DOSE AT 1 PM 1ML. CONTINUOUS DOSE 3.3ML AT 13.40
     Route: 050
  2. DUODOPA [Suspect]
     Active Substance: CARBIDOPA\LEVODOPA
     Indication: PARKINSON^S DISEASE
     Dosage: 100ML CASSETTE DAILY?MORNING DOSE 8ML, CONTINUOUS DOSE 3.1ML?EXTRA DOSE 3ML
     Route: 050

REACTIONS (2)
  - C-reactive protein increased [Not Recovered/Not Resolved]
  - Abdominal pain [Not Recovered/Not Resolved]
